FAERS Safety Report 9962077 (Version 1)
Quarter: 2014Q1

REPORT INFORMATION
  Report Type: Spontaneous
  Country: US (occurrence: None)
  Receive Date: 20140127
  Receipt Date: 20140127
  Transmission Date: 20141002
  Serious: Yes (Hospitalization)
  Sender: FDA-Public Use
  Company Number: 1209329

PATIENT
  Age: 52 Year
  Sex: Male

DRUGS (5)
  1. ACTILYSE [Suspect]
     Indication: ISCHAEMIC STROKE
     Dosage: INTRAVENOUS (NOT OTHERWISE SPECIFIED)?
     Route: 042
  2. ASPIRIN (ASPIRIN) [Concomitant]
  3. CLOPIDOGREL (CLOPIDOGREL BISULFATE) [Concomitant]
  4. ABCIXIMAB (ABCIXIMAB) [Concomitant]
  5. SIMVASTATIN (SIMVASTATIN) [Concomitant]

REACTIONS (2)
  - Cerebral artery occlusion [None]
  - Disease recurrence [None]
